FAERS Safety Report 17726709 (Version 2)
Quarter: 2020Q3

REPORT INFORMATION
  Report Type: Report from Study
  Country: FR (occurrence: FR)
  Receive Date: 20200430
  Receipt Date: 20200911
  Transmission Date: 20201102
  Serious: Yes (Death, Other)
  Sender: FDA-Public Use
  Company Number: FR-ADVANZ PHARMA-202004004067

PATIENT

DRUGS (1)
  1. HYDROXYCHLOROQUINE [Suspect]
     Active Substance: HYDROXYCHLOROQUINE
     Indication: COVID-19
     Dosage: 400 MG, QD (FILM?COATED TABLET)
     Dates: start: 20200331, end: 20200410

REACTIONS (5)
  - Multiple organ dysfunction syndrome [Fatal]
  - Septic shock [Fatal]
  - Sinus tachycardia [Not Recovered/Not Resolved]
  - Sinus tachycardia [Recovered/Resolved]
  - Off label use [Unknown]

NARRATIVE: CASE EVENT DATE: 20200331
